FAERS Safety Report 6520161-8 (Version None)
Quarter: 2009Q4

REPORT INFORMATION
  Report Type: 
  Country: None (occurrence: None)
  Receive Date: 20091229
  Receipt Date: 20091214
  Transmission Date: 20100525
  Serious: Yes (Life-Threatening)
  Sender: FDA-Public Use
  Company Number: JP-PFIZER INC-2009307512

PATIENT
  Sex: Female
  Weight: 53 kg

DRUGS (6)
  1. ZITHROMAC SR [Suspect]
     Indication: BRONCHITIS
     Dosage: 2 G, SINGLE
     Route: 048
     Dates: start: 20091202, end: 20091202
  2. CRAVIT [Concomitant]
     Route: 048
     Dates: start: 20091130, end: 20091201
  3. KAKKON-TO [Concomitant]
     Indication: NASOPHARYNGITIS
     Route: 048
     Dates: start: 20091130, end: 20091201
  4. ASTOMIN [Concomitant]
     Route: 048
     Dates: start: 20091130
  5. CALONAL [Concomitant]
     Indication: PYREXIA
     Route: 048
     Dates: start: 20091130
  6. TAMIFLU [Concomitant]
     Indication: INFLUENZA
     Dates: start: 20091202, end: 20091206

REACTIONS (7)
  - ABDOMINAL PAIN [None]
  - ASTHENIA [None]
  - DIARRHOEA [None]
  - DIZZINESS [None]
  - HYPERHIDROSIS [None]
  - NAUSEA [None]
  - SYNCOPE [None]
